FAERS Safety Report 15367935 (Version 1)
Quarter: 2018Q3

REPORT INFORMATION
  Report Type: Spontaneous
  Country: JP (occurrence: JP)
  Receive Date: 20180910
  Receipt Date: 20180910
  Transmission Date: 20181010
  Serious: Yes (Other)
  Sender: FDA-Public Use
  Company Number: JP-PFIZER INC-2018364136

PATIENT
  Age: 90 Year

DRUGS (1)
  1. CELECOX [Suspect]
     Active Substance: CELECOXIB
     Dosage: 100 MG, 1X/DAY
     Route: 048

REACTIONS (2)
  - Off label use [Unknown]
  - Haemorrhage subcutaneous [Unknown]
